FAERS Safety Report 15228572 (Version 3)
Quarter: 2019Q3

REPORT INFORMATION
  Report Type: Spontaneous
  Country: US (occurrence: US)
  Receive Date: 20180801
  Receipt Date: 20190830
  Transmission Date: 20191004
  Serious: No
  Sender: FDA-Public Use
  Company Number: US-SA-2018SA205863

PATIENT
  Age: 27 Year
  Sex: Male

DRUGS (7)
  1. CETAPHIL ANTIBACTERIAL [Concomitant]
     Dosage: UNK, UNK
     Route: 065
  2. HALOBETASOL PROPIONATE. [Concomitant]
     Active Substance: HALOBETASOL PROPIONATE
     Dosage: UNK, UNK
     Route: 065
  3. BENZONATATE. [Concomitant]
     Active Substance: BENZONATATE
     Dosage: 200 MG, UNK
     Route: 065
  4. DUPIXENT [Suspect]
     Active Substance: DUPILUMAB
     Dosage: UNK
     Dates: start: 201902
  5. DUPIXENT [Suspect]
     Active Substance: DUPILUMAB
     Indication: DERMATITIS ATOPIC
     Dosage: 600 MG, 1X
     Route: 058
     Dates: start: 201806
  6. BROMPHENIRAMINE [Concomitant]
     Active Substance: BROMPHENIRAMINE
     Dosage: UNK, UNK
     Route: 065
  7. AZITHROMYCIN ANHYDROUS. [Concomitant]
     Active Substance: AZITHROMYCIN ANHYDROUS
     Dosage: 250 MG
     Route: 065

REACTIONS (3)
  - Eye pruritus [Recovered/Resolved]
  - Product dose omission [Unknown]
  - Lacrimation increased [Unknown]
